FAERS Safety Report 9182735 (Version 2)
Quarter: 2013Q2

REPORT INFORMATION
  Report Type: Report from Study
  Country: FR (occurrence: FR)
  Receive Date: 20130322
  Receipt Date: 20130524
  Transmission Date: 20140414
  Serious: Yes (Hospitalization)
  Sender: FDA-Public Use
  Company Number: FR-ABBOTT-13P-056-1063744-00

PATIENT
  Age: 35 Year
  Sex: Male

DRUGS (13)
  1. HUMIRA [Suspect]
     Indication: CROHN^S DISEASE
     Dosage: (BASELINE)
     Route: 058
     Dates: start: 20090629, end: 20090629
  2. HUMIRA [Suspect]
     Dosage: (WEEK 2)
     Route: 058
  3. HUMIRA [Suspect]
     Route: 058
  4. HUMIRA [Suspect]
     Route: 058
     Dates: start: 20090917, end: 20100412
  5. SMECTA [Concomitant]
     Indication: DIARRHOEA
     Dates: start: 20090915
  6. LOPERAMIDE SANDOZ [Concomitant]
     Indication: DIARRHOEA
     Dates: start: 20090915
  7. VISCERALGINE [Concomitant]
     Indication: ABDOMINAL PAIN
     Dates: start: 20090915
  8. TRIMEBUTINE [Concomitant]
     Indication: ABDOMINAL PAIN
     Dates: start: 20090915
  9. IXPRIM [Concomitant]
     Indication: PAIN
     Dates: start: 20090915
  10. VOGALENE [Concomitant]
     Indication: NAUSEA
     Dates: start: 20090915
  11. CORTANCYL [Concomitant]
     Indication: CROHN^S DISEASE
     Dates: start: 20100414
  12. REMICADE [Concomitant]
     Indication: CROHN^S DISEASE
     Dates: end: 200905
  13. REMICADE [Concomitant]
     Dates: start: 20100713

REACTIONS (1)
  - Intestinal perforation [Unknown]
